FAERS Safety Report 16918625 (Version 2)
Quarter: 2019Q4

REPORT INFORMATION
  Report Type: Spontaneous
  Country: JP (occurrence: JP)
  Receive Date: 20191015
  Receipt Date: 20191128
  Transmission Date: 20200122
  Serious: Yes (Death)
  Sender: FDA-Public Use
  Company Number: JP-ROCHE-2435588

PATIENT
  Age: 56 Year
  Sex: Male
  Weight: 65 kg

DRUGS (3)
  1. PEMETREXED DISODIUM HEPTAHYDRATE [Suspect]
     Active Substance: PEMETREXED
     Indication: LUNG ADENOCARCINOMA
     Route: 041
     Dates: start: 20190205, end: 20190205
  2. CARBOPLATIN. [Suspect]
     Active Substance: CARBOPLATIN
     Indication: LUNG ADENOCARCINOMA
     Route: 041
     Dates: start: 20190205, end: 20190205
  3. AVASTIN [Suspect]
     Active Substance: BEVACIZUMAB
     Indication: LUNG ADENOCARCINOMA
     Route: 041
     Dates: start: 20190205, end: 20190205

REACTIONS (2)
  - Cerebral infarction [Fatal]
  - Vertebral artery occlusion [Fatal]

NARRATIVE: CASE EVENT DATE: 20190206
